FAERS Safety Report 6346008-0 (Version None)
Quarter: 2009Q3

REPORT INFORMATION
  Report Type: 
  Country: None (occurrence: None)
  Receive Date: 20090828
  Receipt Date: 20090722
  Transmission Date: 20100115
  Serious: Yes (Other)
  Sender: FDA-Public Use
  Company Number: 203126USA

PATIENT
  Age: 52 Year
  Sex: Female

DRUGS (1)
  1. SUMATRIPTAN SUCCINATE [Suspect]
     Dosage: (100 MG), ORAL
     Route: 048
     Dates: start: 20090719, end: 20090701

REACTIONS (5)
  - DIZZINESS [None]
  - DYSPHAGIA [None]
  - HEAD DISCOMFORT [None]
  - HOT FLUSH [None]
  - HYPERTENSIVE CRISIS [None]
